FAERS Safety Report 6912518-8 (Version None)
Quarter: 2010Q3

REPORT INFORMATION
  Report Type: 
  Country: None (occurrence: None)
  Receive Date: 20100806
  Receipt Date: 20080623
  Transmission Date: 20110219
  Serious: No
  Sender: FDA-Public Use
  Company Number: US-PFIZER INC-2008052598

PATIENT

DRUGS (1)
  1. NAVANE [Suspect]

REACTIONS (2)
  - INFERTILITY [None]
  - MENSTRUATION IRREGULAR [None]
